FAERS Safety Report 5803247-2 (Version None)
Quarter: 2008Q3

REPORT INFORMATION
  Report Type: 
  Country: None (occurrence: None)
  Receive Date: 20080701
  Receipt Date: 20080104
  Transmission Date: 20090109
  Serious: No
  Sender: FDA-Public Use
  Company Number: US200801001000

PATIENT
  Sex: Female

DRUGS (5)
  1. HUMALOG [Suspect]
     Indication: TYPE 2 DIABETES MELLITUS
     Dates: start: 20070101
  2. HUMALOG [Suspect]
     Indication: TYPE 2 DIABETES MELLITUS
     Dates: start: 20071001
  3. GLYBURIDE [Concomitant]
  4. ACTOS [Concomitant]
  5. METFORMIN HCL [Concomitant]

REACTIONS (3)
  - BLOOD GLUCOSE DECREASED [None]
  - HYPOGLYCAEMIC UNCONSCIOUSNESS [None]
  - TREMOR [None]
